FAERS Safety Report 6337303-X (Version None)
Quarter: 2009Q3

REPORT INFORMATION
  Report Type: 
  Country: None (occurrence: None)
  Receive Date: 20090902
  Receipt Date: 20070906
  Transmission Date: 20100115
  Serious: Yes (Other)
  Sender: FDA-Public Use
  Company Number: US-ASTRAZENECA-2006UW27888

PATIENT
  Age: 16657 Day
  Sex: Female
  Weight: 108 kg

DRUGS (18)
  1. SEROQUEL [Suspect]
     Indication: SCHIZOAFFECTIVE DISORDER
     Route: 048
     Dates: start: 20040901, end: 20050301
  2. SEROQUEL [Suspect]
     Dosage: 200 MG TABLET DISPENSED
     Route: 048
     Dates: start: 20041026
  3. SEROQUEL [Suspect]
     Route: 048
     Dates: start: 20071115
  4. ABILIFY [Concomitant]
  5. CLOZARIL [Concomitant]
  6. RISPERDAL [Concomitant]
  7. NEXIUM [Concomitant]
     Route: 048
     Dates: start: 20030622
  8. CLONAZEPAM [Concomitant]
     Dosage: 1 MG - 3 MG
     Route: 048
     Dates: start: 20041026
  9. VYTORIN [Concomitant]
     Dosage: 10 / 80 ONE TABLET DAILY
     Route: 048
     Dates: start: 20060412
  10. ACTOS [Concomitant]
     Route: 048
     Dates: start: 20071115
  11. CYMBALTA [Concomitant]
     Dosage: 30 MG - 90 MG
     Route: 048
     Dates: start: 20071115
  12. RISPERIDONE [Concomitant]
     Route: 048
     Dates: start: 20050423
  13. ADVAIR HFA [Concomitant]
     Dosage: 500 / 50 ONE PUFF TWO TIMES A DAY
     Route: 048
     Dates: start: 20040406
  14. ASPIRIN [Concomitant]
     Route: 048
     Dates: start: 20040406
  15. OXYCODONE [Concomitant]
     Dosage: 5 MG ONE TO TWO TABLETS EVERY SIX HOURS AS NEEDED
     Route: 048
     Dates: start: 20050616
  16. MIRAPEX [Concomitant]
     Route: 048
     Dates: start: 20040928
  17. PREDNISONE TAB [Concomitant]
     Dates: start: 20040928
  18. LIPITOR [Concomitant]
     Dates: start: 20040406

REACTIONS (5)
  - DIABETES MELLITUS [None]
  - DIABETES MELLITUS INADEQUATE CONTROL [None]
  - DIABETIC NEUROPATHY [None]
  - TYPE 1 DIABETES MELLITUS [None]
  - TYPE 2 DIABETES MELLITUS [None]
